FAERS Safety Report 25223999 (Version 2)
Quarter: 2025Q3

REPORT INFORMATION
  Report Type: Report from Study
  Country: US (occurrence: US)
  Receive Date: 20250422
  Receipt Date: 20250803
  Transmission Date: 20251021
  Serious: Yes (Other)
  Sender: ALEXION PHARMACEUTICALS
  Company Number: US-AstraZeneca-CH-00850233A

PATIENT
  Sex: Female

DRUGS (4)
  1. TEZEPELUMAB [Suspect]
     Active Substance: TEZEPELUMAB
  2. TEZEPELUMAB [Suspect]
     Active Substance: TEZEPELUMAB
  3. AZTREONAM [Concomitant]
     Active Substance: AZTREONAM
     Route: 065
     Dates: start: 20231110, end: 20231111
  4. LEVAQUIN [Concomitant]
     Active Substance: LEVOFLOXACIN
     Route: 065

REACTIONS (26)
  - Bronchitis [Unknown]
  - Obstructive sleep apnoea syndrome [Unknown]
  - Dyspnoea [Unknown]
  - Back pain [Unknown]
  - Emotional disorder [Unknown]
  - Atelectasis [Unknown]
  - Pulmonary fibrosis [Unknown]
  - Peritoneal cyst [Unknown]
  - Seroma [Unknown]
  - Spinal disorder [Unknown]
  - Obstructive airways disorder [Unknown]
  - Pulmonary mass [Unknown]
  - Asthma [Unknown]
  - Heart rate decreased [Unknown]
  - Hypothyroidism [Unknown]
  - Fibromyalgia [Unknown]
  - Gastrooesophageal reflux disease [Unknown]
  - Costochondritis [Unknown]
  - Bacterial disease carrier [Unknown]
  - Pneumonia pseudomonal [Unknown]
  - Parainfluenzae virus infection [Unknown]
  - Rhinitis [Unknown]
  - Upper-airway cough syndrome [Unknown]
  - Fibromyalgia [Unknown]
  - Hallucination [Unknown]
  - Drug hypersensitivity [Unknown]
